FAERS Safety Report 6253458-X (Version None)
Quarter: 2009Q3

REPORT INFORMATION
  Report Type: 
  Country: None (occurrence: None)
  Receive Date: 20090701
  Receipt Date: 20090623
  Transmission Date: 20100115
  Serious: Yes (Hospitalization)
  Sender: FDA-Public Use
  Company Number: PL-MEDIMMUNE-MEDI-0008446

PATIENT
  Sex: Female
  Weight: 1.006 kg

DRUGS (5)
  1. SYNAGIS [Suspect]
     Indication: BRONCHOPULMONARY DYSPLASIA
     Route: 030
     Dates: start: 20081223, end: 20090129
  2. SYNAGIS [Suspect]
     Route: 030
     Dates: start: 20081223
  3. SYNAGIS [Suspect]
     Route: 030
     Dates: start: 20090310
  4. SYNAGIS [Suspect]
     Route: 030
     Dates: start: 20090404
  5. SYNAGIS [Suspect]
     Route: 030
     Dates: start: 20090429

REACTIONS (2)
  - BRONCHOPNEUMONIA [None]
  - RESPIRATORY DISORDER [None]
